FAERS Safety Report 9121362 (Version 2)
Quarter: 2013Q1

REPORT INFORMATION
  Report Type: Spontaneous
  Country: CH (occurrence: CH)
  Receive Date: 20130225
  Receipt Date: 20130312
  Transmission Date: 20140127
  Serious: Yes (Life-Threatening)
  Sender: FDA-Public Use
  Company Number: CH-BAYER-2013-022110

PATIENT
  Age: 36 Year
  Sex: Female

DRUGS (1)
  1. QLAIRA [Suspect]
     Indication: CONTRACEPTION
     Dosage: UNK
     Route: 048
     Dates: end: 20130120

REACTIONS (5)
  - Pulmonary embolism [Recovered/Resolved with Sequelae]
  - Cardiac arrest [Recovered/Resolved with Sequelae]
  - Hypoxic-ischaemic encephalopathy [Unknown]
  - Grand mal convulsion [Unknown]
  - Pneumonia [Recovered/Resolved]
